FAERS Safety Report 13774334 (Version 1)
Quarter: 2017Q3

REPORT INFORMATION
  Report Type: Spontaneous
  Country: US (occurrence: US)
  Receive Date: 20170720
  Receipt Date: 20170720
  Transmission Date: 20171127
  Serious: Yes (Life-Threatening, Hospitalization)
  Sender: FDA-Public Use
  Company Number: None

PATIENT
  Age: 51 Year
  Sex: Male
  Weight: 108.4 kg

DRUGS (19)
  1. ATORVASTATIN [Concomitant]
     Active Substance: ATORVASTATIN
  2. FERRIC CITRATE [Concomitant]
     Active Substance: TETRAFERRIC TRICITRATE DECAHYDRATE
  3. JANUVIA [Concomitant]
     Active Substance: SITAGLIPTIN PHOSPHATE
  4. BD INSULIN SYRINGE ULT-FINE II [Concomitant]
  5. GENTAMICIN SULFATE. [Concomitant]
     Active Substance: GENTAMICIN SULFATE
  6. FENOFIBRATE. [Concomitant]
     Active Substance: FENOFIBRATE
  7. LOSARTAN. [Concomitant]
     Active Substance: LOSARTAN
  8. ATORVASTATIN CALCIUM. [Concomitant]
     Active Substance: ATORVASTATIN CALCIUM
  9. BD INSULIN PEN NEEDLE UF MINI [Concomitant]
  10. GENTAMICIN. [Concomitant]
     Active Substance: GENTAMICIN
  11. LOSARTAN POTASSIUM. [Concomitant]
     Active Substance: LOSARTAN POTASSIUM
  12. ALLOPURINOL. [Concomitant]
     Active Substance: ALLOPURINOL
  13. FREESTYLE TES LITE [Concomitant]
  14. AURYXIA [Concomitant]
     Active Substance: TETRAFERRIC TRICITRATE DECAHYDRATE
  15. SITAGLIPTIN PHOSPHATE [Concomitant]
     Active Substance: SITAGLIPTIN PHOSPHATE
  16. VITAMIN D [Concomitant]
     Active Substance: CHOLECALCIFEROL
  17. TRULICITY [Suspect]
     Active Substance: DULAGLUTIDE
     Indication: DIABETES MELLITUS
     Dates: start: 20170601, end: 20170626
  18. NOVOFINE [Concomitant]
     Active Substance: INSULIN NOS
  19. PANTOPRAZOLE SODIUM. [Concomitant]
     Active Substance: PANTOPRAZOLE SODIUM

REACTIONS (4)
  - Lipase increased [None]
  - Pancreatic disorder [None]
  - Abdominal pain [None]
  - Oedema [None]

NARRATIVE: CASE EVENT DATE: 20170626
